FAERS Safety Report 5281490-1 (Version None)
Quarter: 2007Q1

REPORT INFORMATION
  Report Type: 
  Country: None (occurrence: None)
  Receive Date: 20061226
  Receipt Date: 20060814
  Transmission Date: 20070707
  Serious: No
  Sender: FDA-Public Use
  Company Number: PHEH2006US10377

PATIENT
  Age: 66 Year
  Sex: Female

DRUGS (7)
  1. ENABLEX [Suspect]
     Indication: HYPERTONIC BLADDER
     Dosage: 15 MG, QD
  2. OMNICEF [Suspect]
     Indication: CYSTITIS
  3. GLUCOPHAGE [Concomitant]
  4. ACTOS (PIOGLITAZONE, PIOGLITAZONE HYDROCHLORIDE) [Concomitant]
  5. LOTENSIN [Concomitant]
  6. LIPITOR /NET/(ATORVASTATIN CALCIUM) [Concomitant]
  7. EFFEXOR [Concomitant]

REACTIONS (1)
  - URTICARIA [None]
